FAERS Safety Report 19405972 (Version 4)
Quarter: 2021Q3

REPORT INFORMATION
  Report Type: Spontaneous
  Country: US (occurrence: US)
  Receive Date: 20210611
  Receipt Date: 20210805
  Transmission Date: 20211014
  Serious: No
  Sender: FDA-Public Use
  Company Number: US-PFIZER INC-2021458277

PATIENT
  Age: 13 Year
  Sex: Male
  Weight: 38.56 kg

DRUGS (1)
  1. GENOTROPIN [Suspect]
     Active Substance: SOMATROPIN
     Indication: GROWTH DISORDER
     Dosage: 3 MG, DAILY
     Dates: start: 201902

REACTIONS (5)
  - Device deployment issue [Unknown]
  - Device information output issue [Unknown]
  - Device breakage [Unknown]
  - Incorrect dose administered [Unknown]
  - Drug dose omission by device [Unknown]
